FAERS Safety Report 8275922-4 (Version None)
Quarter: 2012Q2

REPORT INFORMATION
  Report Type: 
  Country: None (occurrence: None)
  Receive Date: 20120412
  Receipt Date: 20120409
  Transmission Date: 20120825
  Serious: No
  Sender: FDA-Public Use
  Company Number: US-PFIZER INC-2012070057

PATIENT
  Sex: Male
  Weight: 72.562 kg

DRUGS (2)
  1. DETROL LA [Suspect]
     Indication: HYPERTONIC BLADDER
     Dosage: 4 MG, DAILY
     Route: 048
  2. DETROL LA [Suspect]
     Dosage: 4 MG, 2X/DAY
     Route: 048

REACTIONS (1)
  - DRUG INEFFECTIVE [None]
